FAERS Safety Report 4846484-6 (Version None)
Quarter: 2005Q4

REPORT INFORMATION
  Report Type: 
  Country: None (occurrence: None)
  Receive Date: 20051201
  Receipt Date: 20051117
  Transmission Date: 20060501
  Serious: Yes (Hospitalization)
  Sender: FDA-Public Use
  Company Number: SGB1-2005-00550

PATIENT
  Sex: Male
  Weight: 92 kg

DRUGS (4)
  1. ANAGRELIDE HCL [Suspect]
     Dosage: 2.5 MG, 2X/DAY:BID, ORAL
     Route: 048
     Dates: start: 20050401, end: 20051017
  2. BUSULPHAN (BUSULFAN) [Concomitant]
  3. HYDROXYUREA [Concomitant]
  4. ASPIRIN [Concomitant]

REACTIONS (3)
  - CARDIAC FAILURE CONGESTIVE [None]
  - JAUNDICE CHOLESTATIC [None]
  - PYREXIA [None]
